FAERS Safety Report 22170823 (Version 1)
Quarter: 2023Q2

REPORT INFORMATION
  Report Type: Spontaneous
  Country: US (occurrence: None)
  Receive Date: 20230403
  Receipt Date: 20230403
  Transmission Date: 20230721
  Serious: No
  Sender: FDA-Public Use
  Company Number: None

PATIENT
  Age: 65 Year
  Sex: Male
  Weight: 81.19 kg

DRUGS (13)
  1. CAPECITABINE [Suspect]
     Active Substance: CAPECITABINE
     Indication: Chronic lymphocytic leukaemia stage 1
     Dosage: FREQUENCY : TWICE A DAY;?
     Route: 048
     Dates: start: 202209
  2. ACYCLOVIR [Concomitant]
     Active Substance: ACYCLOVIR
  3. ALLOPURINOL [Concomitant]
     Active Substance: ALLOPURINOL
  4. DUREZOL [Concomitant]
  5. ELIQUIS [Concomitant]
     Active Substance: APIXABAN
  6. FLUCONAZOLE [Concomitant]
     Active Substance: FLUCONAZOLE
  7. GAZYVA [Concomitant]
     Active Substance: OBINUTUZUMAB
  8. LOVENOX [Concomitant]
     Active Substance: ENOXAPARIN SODIUM
  9. METAMUCIL [Concomitant]
  10. OFLOXACIN [Concomitant]
  11. PROCHLORPERAZINE [Concomitant]
     Active Substance: PROCHLORPERAZINE
  12. TUMS [Concomitant]
     Active Substance: CALCIUM CARBONATE
  13. TYLENOL [Concomitant]

REACTIONS (1)
  - COVID-19 [None]

NARRATIVE: CASE EVENT DATE: 20230329
